FAERS Safety Report 6421708-2 (Version None)
Quarter: 2009Q4

REPORT INFORMATION
  Report Type: 
  Country: None (occurrence: None)
  Receive Date: 20091029
  Receipt Date: 20091029
  Transmission Date: 20100525
  Serious: Yes (Other)
  Sender: FDA-Public Use
  Company Number: None

PATIENT
  Age: 62 Year
  Sex: Female
  Weight: 74.8435 kg

DRUGS (2)
  1. PAROXETINE HCL [Suspect]
     Indication: MAJOR DEPRESSION
     Dosage: 20 MG PO
     Route: 048
     Dates: start: 20080101
  2. PAROXETINE HCL [Suspect]
     Indication: MAJOR DEPRESSION
     Dosage: 20 MG PO
     Route: 048
     Dates: start: 20090101

REACTIONS (4)
  - CONDITION AGGRAVATED [None]
  - DEPRESSION [None]
  - DRUG INEFFECTIVE [None]
  - PRODUCT SUBSTITUTION ISSUE [None]
